FAERS Safety Report 20469226 (Version 4)
Quarter: 2024Q1

REPORT INFORMATION
  Report Type: Report from Study
  Country: US (occurrence: US)
  Receive Date: 20220214
  Receipt Date: 20240207
  Transmission Date: 20240410
  Serious: No
  Sender: FDA-Public Use
  Company Number: US-ORG100014127-2021001496

PATIENT
  Age: 38 Year
  Sex: Female

DRUGS (7)
  1. LYSODREN [Suspect]
     Active Substance: MITOTANE
     Indication: Adrenal gland cancer
     Dosage: 1 TAB TID FOR 3-4 DAYS, INCREASE BY 1 TAB EVERY 3 -4 DAYS TO A TOTAL OF 8 TO 10 TAB PER DAY.
     Route: 048
     Dates: start: 20211105, end: 20211129
  2. LYSODREN [Suspect]
     Active Substance: MITOTANE
     Indication: Adrenal gland cancer
     Dosage: 03 TABLETS WITH BREAKFAST, 02 TABLETS WITH LUNCH AND 03 TABLETS WITH DINNER
     Route: 048
  3. HYDROCORT TAB 20MG [Concomitant]
     Indication: Product used for unknown indication
  4. HYDROCORT TAB 5MG [Concomitant]
     Indication: Product used for unknown indication
  5. LORAZEPAM TAB 0.5MG [Concomitant]
     Indication: Product used for unknown indication
  6. ONDANSETRON [Concomitant]
     Active Substance: ONDANSETRON
     Indication: Product used for unknown indication
  7. PHENERGANINJ 25MG/ML [Concomitant]
     Indication: Product used for unknown indication

REACTIONS (2)
  - Urticaria [Not Recovered/Not Resolved]
  - Rash [Not Recovered/Not Resolved]

NARRATIVE: CASE EVENT DATE: 20211101
